FAERS Safety Report 5276049-6 (Version None)
Quarter: 2007Q1

REPORT INFORMATION
  Report Type: 
  Country: None (occurrence: None)
  Receive Date: 20061213
  Receipt Date: 20051017
  Transmission Date: 20070707
  Serious: No
  Sender: FDA-Public Use
  Company Number: 2005UW13680

PATIENT
  Age: 40 Year
  Sex: Female
  Weight: 85.7298 kg

DRUGS (4)
  1. SEROQUEL [Suspect]
     Indication: INSOMNIA
     Dosage: 50 MG DAILY PO
     Route: 048
     Dates: start: 20050913, end: 20050914
  2. . [Concomitant]
  3. REQUIP [Concomitant]
  4. ELAVIL [Concomitant]

REACTIONS (2)
  - CONFUSIONAL STATE [None]
  - CONVULSION [None]
